FAERS Safety Report 10189907 (Version 1)
Quarter: 2014Q2

REPORT INFORMATION
  Report Type: Spontaneous
  Country: GR (occurrence: GR)
  Receive Date: 20140522
  Receipt Date: 20140522
  Transmission Date: 20141212
  Serious: Yes (Other)
  Sender: FDA-Public Use
  Company Number: GR-MYLANLABS-2014S1010938

PATIENT
  Age: 73 Year
  Sex: Male

DRUGS (4)
  1. BUDESONIDE [Suspect]
     Indication: PSORIASIS
     Dosage: BUDESONIDE 0.025% APPLIED TO AFFECTED AREAS ONCE DAILY FOR A MONTH; MONTHLY ESTIMATED USAGE WAS 400G
     Route: 061
  2. BUDESONIDE [Suspect]
     Indication: OFF LABEL USE
     Dosage: BUDESONIDE 0.025% APPLIED TO AFFECTED AREAS ONCE DAILY FOR A MONTH; MONTHLY ESTIMATED USAGE WAS 400G
     Route: 061
  3. CLOBETASOL [Suspect]
     Indication: PSORIASIS
     Dosage: CLOBETASOL 0.005%
     Route: 061
  4. BETAMETHASONE VALERATE [Suspect]
     Indication: PSORIASIS
     Dosage: BETAMETHASONE VALERATE 0.1%
     Route: 061

REACTIONS (1)
  - Kaposi^s sarcoma [Recovering/Resolving]
